FAERS Safety Report 8375928-0 (Version None)
Quarter: 2012Q2

REPORT INFORMATION
  Report Type: 
  Country: None (occurrence: None)
  Receive Date: 20120518
  Receipt Date: 20120503
  Transmission Date: 20120825
  Serious: Yes (Hospitalization)
  Sender: FDA-Public Use
  Company Number: 2012SGN00162

PATIENT
  Age: 77 Year
  Sex: Male
  Weight: 88.2 kg

DRUGS (6)
  1. DYAZIDE (HYDROCHLOROTHIAZIDE) [Concomitant]
  2. BRENTUXIMAB VEDOTIN (BRENTUXIMAB VEDOTIN) INJECTION [Suspect]
     Indication: ANGIOIMMUNOBLASTIC T-CELL LYMPHOMA
     Dosage: 1.8 MG/KG, Q21D, INTRAVENOUS
     Route: 042
     Dates: start: 20120330, end: 20120330
  3. DILTIAZEM HYDROCHLORIDE [Concomitant]
  4. METOPROLOL TARTRATE [Concomitant]
  5. ALLOPURINOL [Concomitant]
  6. CELEXA [Concomitant]

REACTIONS (1)
  - PANCREATITIS [None]
